FAERS Safety Report 24207851 (Version 1)
Quarter: 2024Q3

REPORT INFORMATION
  Report Type: Spontaneous
  Country: US (occurrence: US)
  Receive Date: 20240814
  Receipt Date: 20240814
  Transmission Date: 20241016
  Serious: Yes (Other)
  Sender: UPSHER SMITH LABORATORIES
  Company Number: US-UPSHER-SMITH LABORATORIES, LLC-20240800067

PATIENT
  Age: 1 Year
  Sex: Female

DRUGS (3)
  1. VIGADRONE [Suspect]
     Active Substance: VIGABATRIN
     Indication: Infantile spasms
     Dosage: UNK
     Route: 065
  2. VIGADRONE [Suspect]
     Active Substance: VIGABATRIN
     Dosage: 12 ML, BID
     Route: 048
  3. VIGADRONE [Suspect]
     Active Substance: VIGABATRIN
     Dosage: 700 MG (14 ML), BID
     Route: 048

REACTIONS (2)
  - Floppy infant [Unknown]
  - Vomiting [Unknown]

NARRATIVE: CASE EVENT DATE: 20240807
